FAERS Safety Report 23950805 (Version 1)
Quarter: 2024Q2

REPORT INFORMATION
  Report Type: Report from Study
  Country: US (occurrence: US)
  Receive Date: 20240607
  Receipt Date: 20240607
  Transmission Date: 20240716
  Serious: No
  Sender: FDA-Public Use
  Company Number: US-SPRINGWORKS THERAPEUTICS-SW-001475

PATIENT
  Age: 16 Year
  Sex: Male

DRUGS (3)
  1. NIROGACESTAT [Suspect]
     Active Substance: NIROGACESTAT
     Indication: Soft tissue neoplasm
     Dosage: 50 MILLIGRAM, BID
     Route: 048
     Dates: start: 20240315
  2. NIROGACESTAT [Suspect]
     Active Substance: NIROGACESTAT
     Indication: Connective tissue neoplasm
     Dosage: 100 MILLIGRAM, BID
     Route: 048
     Dates: start: 20240329
  3. NIROGACESTAT [Suspect]
     Active Substance: NIROGACESTAT
     Indication: Desmoid tumour

REACTIONS (4)
  - Nausea [Recovered/Resolved]
  - Diarrhoea [Recovered/Resolved]
  - Off label use [Unknown]
  - Intentional underdose [Unknown]

NARRATIVE: CASE EVENT DATE: 20240301
